FAERS Safety Report 4965395-9 (Version None)
Quarter: 2006Q2

REPORT INFORMATION
  Report Type: 
  Country: None (occurrence: None)
  Receive Date: 20060406
  Receipt Date: 20051025
  Transmission Date: 20061013
  Serious: Yes (Hospitalization)
  Sender: FDA-Public Use
  Company Number: US-MERCK-0510USA09191

PATIENT
  Age: 64 Year
  Sex: Male
  Weight: 66 kg

DRUGS (7)
  1. VIOXX [Suspect]
     Indication: SCIATICA
     Route: 048
     Dates: start: 20030301, end: 20040201
  2. PLAVIX [Concomitant]
     Route: 065
  3. NEXIUM [Concomitant]
     Route: 065
  4. CLONIDINE [Concomitant]
     Route: 065
  5. DIOVAN [Concomitant]
     Route: 065
  6. ATENOLOL [Concomitant]
     Route: 065
  7. HYDROCHLOROTHIAZIDE [Concomitant]
     Route: 065

REACTIONS (1)
  - CEREBROVASCULAR ACCIDENT [None]
